FAERS Safety Report 25333966 (Version 1)
Quarter: 2025Q2

REPORT INFORMATION
  Report Type: Spontaneous
  Country: DE (occurrence: DE)
  Receive Date: 20250520
  Receipt Date: 20250520
  Transmission Date: 20250716
  Serious: Yes (Congenital Anomaly)
  Sender: RANBAXY
  Company Number: DE-EMB-M202306166-1

PATIENT
  Sex: Female
  Weight: 3.05 kg

DRUGS (11)
  1. SERTRALINE [Suspect]
     Active Substance: SERTRALINE HYDROCHLORIDE
     Indication: Depression
     Dosage: 100 MILLIGRAM, DAILY
     Route: 064
     Dates: start: 202306, end: 202403
  2. BUDESONIDE [Suspect]
     Active Substance: BUDESONIDE
     Indication: Asthma
     Route: 064
  3. MECLIZINE [Suspect]
     Active Substance: MECLIZINE HYDROCHLORIDE
     Indication: Hyperemesis gravidarum
     Route: 064
  4. SUMATRIPTAN [Suspect]
     Active Substance: SUMATRIPTAN
     Indication: Migraine
     Route: 064
  5. MELATONIN [Suspect]
     Active Substance: MELATONIN
     Indication: Sleep disorder
     Route: 064
  6. AMITRIPTYLINE [Concomitant]
     Active Substance: AMITRIPTYLINE
     Indication: Sleep disorder
     Dosage: 1 GTT DROPS, DAILY
     Route: 064
     Dates: start: 202306, end: 202307
  7. ALBUTEROL [Concomitant]
     Active Substance: ALBUTEROL
     Indication: Asthma
     Route: 064
     Dates: start: 202306, end: 202307
  8. IBUPROFEN [Concomitant]
     Active Substance: IBUPROFEN
     Indication: Migraine
     Route: 064
     Dates: start: 202306, end: 202307
  9. CELESTAMINE [Concomitant]
     Active Substance: BETAMETHASONE\DEXCHLORPHENIRAMINE MALEATE
     Indication: Anaphylactic reaction
     Route: 064
     Dates: start: 202307, end: 202307
  10. ACETAMINOPHEN [Concomitant]
     Active Substance: ACETAMINOPHEN
     Indication: Migraine
     Route: 064
     Dates: start: 202306, end: 202307
  11. ZOLMITRIPTAN [Concomitant]
     Active Substance: ZOLMITRIPTAN
     Indication: Migraine
     Dosage: 5 MILLIGRAM, DAILY
     Route: 064
     Dates: start: 202307, end: 202307

REACTIONS (2)
  - Congenital hypoplasia of depressor angularis oris muscle [Not Recovered/Not Resolved]
  - Foetal exposure during pregnancy [Unknown]
